FAERS Safety Report 6440294-4 (Version None)
Quarter: 2009Q4

REPORT INFORMATION
  Report Type: 
  Country: None (occurrence: None)
  Receive Date: 20091113
  Receipt Date: 20091109
  Transmission Date: 20100525
  Serious: Yes (Death)
  Sender: FDA-Public Use
  Company Number: CA-CELGENEUS-028-C5013-09110646

PATIENT
  Sex: Female
  Weight: 44.3 kg

DRUGS (18)
  1. CC-5013 [Suspect]
     Indication: MULTIPLE MYELOMA
     Route: 048
     Dates: start: 20090610, end: 20091104
  2. DEXAMETHASONE [Suspect]
     Indication: MULTIPLE MYELOMA
     Route: 065
     Dates: start: 20090610, end: 20091104
  3. ASPIRIN [Concomitant]
     Indication: PROPHYLAXIS
     Route: 048
     Dates: start: 20040101
  4. ASPIRIN [Concomitant]
  5. PLAVIX [Concomitant]
     Indication: PROPHYLAXIS
     Route: 048
     Dates: start: 20090419
  6. LIPITOR [Concomitant]
     Route: 048
     Dates: start: 20090420
  7. PANTOPRAZOLE [Concomitant]
     Indication: PROPHYLAXIS
     Dates: start: 20090421, end: 20090624
  8. LEVOTHYROXINE SODIUM [Concomitant]
     Indication: HYPOTHYROIDISM
     Route: 048
     Dates: start: 20040101
  9. ATIVAN [Concomitant]
     Indication: INSOMNIA
     Route: 060
     Dates: start: 20090610
  10. AMIODARONE HCL [Concomitant]
     Route: 048
     Dates: start: 20090625
  11. VENTOLIN [Concomitant]
     Dosage: 2 PUFFS
     Route: 055
     Dates: start: 20090713
  12. CALCITRIOL [Concomitant]
     Indication: OSTEOPOROSIS
     Route: 048
     Dates: start: 20090626
  13. REPLIVITE [Concomitant]
     Indication: VITAMIN SUPPLEMENTATION
     Route: 048
     Dates: start: 20090626
  14. NIDODRINE [Concomitant]
     Route: 048
     Dates: start: 20090725
  15. DOCUSATE SODIUM [Concomitant]
     Indication: CONSTIPATION PROPHYLAXIS
     Route: 048
     Dates: start: 20090725
  16. ACETAMINOPHEN [Concomitant]
     Indication: PAIN
     Route: 048
     Dates: start: 20090720
  17. LACTULOSE [Concomitant]
     Indication: CONSTIPATION
     Route: 048
     Dates: start: 20090724
  18. ARANESP [Concomitant]
     Route: 051
     Dates: start: 20090731

REACTIONS (1)
  - MYOCARDIAL INFARCTION [None]
